FAERS Safety Report 12506216 (Version 1)
Quarter: 2016Q2

REPORT INFORMATION
  Report Type: Spontaneous
  Country: US (occurrence: US)
  Receive Date: 20160628
  Receipt Date: 20160628
  Transmission Date: 20160815
  Serious: No
  Sender: FDA-Public Use
  Company Number: US-ELI_LILLY_AND_COMPANY-US201606004288

PATIENT
  Sex: Male
  Weight: 53.4 kg

DRUGS (2)
  1. PROZAC [Suspect]
     Active Substance: FLUOXETINE HYDROCHLORIDE
     Indication: ANXIETY
     Dosage: UNK
     Route: 065
  2. GENOTROPIN [Concomitant]
     Active Substance: SOMATROPIN
     Indication: HYPOTHALAMO-PITUITARY DISORDER
     Dosage: 2.2 MG, QD
     Route: 058
     Dates: start: 201409

REACTIONS (1)
  - Tic [Unknown]
